FAERS Safety Report 21698247 (Version 1)
Quarter: 2022Q4

REPORT INFORMATION
  Report Type: Spontaneous
  Country: CA (occurrence: None)
  Receive Date: 20221208
  Receipt Date: 20221208
  Transmission Date: 20230113
  Serious: Yes (Other)
  Sender: FDA-Public Use
  Company Number: CA-ROCHE-3232886

PATIENT
  Age: 30 Year
  Sex: Female

DRUGS (7)
  1. RITUXIMAB [Suspect]
     Active Substance: RITUXIMAB
     Indication: Antisynthetase syndrome
     Dosage: CONCENTRATE FOR SOLUTION FOR INFUSION
     Route: 041
  2. RITUXIMAB [Suspect]
     Active Substance: RITUXIMAB
     Indication: Antisynthetase syndrome
     Route: 041
  3. ACETAMINOPHEN [Concomitant]
     Active Substance: ACETAMINOPHEN
     Route: 048
  4. CALCIUM [Concomitant]
     Active Substance: CALCIUM
     Route: 065
  5. DIPHENHYDRAMINE [Concomitant]
     Active Substance: DIPHENHYDRAMINE
     Route: 048
  6. ERGOCALCIFEROL [Concomitant]
     Active Substance: ERGOCALCIFEROL
     Route: 065
  7. FOLIC ACID [Concomitant]
     Active Substance: FOLIC ACID
     Route: 065

REACTIONS (7)
  - COVID-19 [Recovered/Resolved]
  - Ear infection [Recovered/Resolved]
  - Ear pain [Recovered/Resolved]
  - Eye infection [Recovered/Resolved]
  - Hypothermia [Recovered/Resolved]
  - Nasal congestion [Recovered/Resolved]
  - Off label use [Unknown]
